FAERS Safety Report 4527126-6 (Version None)
Quarter: 2004Q4

REPORT INFORMATION
  Report Type: 
  Country: None (occurrence: None)
  Receive Date: 20041201
  Receipt Date: 20040929
  Transmission Date: 20050328
  Serious: Yes (Life-Threatening, Hospitalization, Other)
  Sender: FDA-Public Use
  Company Number: US092701

PATIENT
  Age: 52 Year
  Sex: Male
  Weight: 95.8 kg

DRUGS (3)
  1. ENBREL [Suspect]
     Indication: PSORIATIC ARTHROPATHY
     Dosage: 25 MG, 2 IN 1 WEEKS, PO
     Route: 048
     Dates: start: 20021210, end: 20040615
  2. METHOTREXATE [Suspect]
     Dosage: 15 MG, 1 IN 1 WEEKS, PO
     Route: 048
     Dates: start: 19971101, end: 20040622
  3. IBUPROFEN [Concomitant]

REACTIONS (4)
  - ARTHRALGIA [None]
  - BETA HAEMOLYTIC STREPTOCOCCAL INFECTION [None]
  - PELVIC ABSCESS [None]
  - PROSTATE CANCER [None]
